FAERS Safety Report 21059046 (Version 3)
Quarter: 2022Q3

REPORT INFORMATION
  Report Type: Spontaneous
  Country: US (occurrence: US)
  Receive Date: 20220708
  Receipt Date: 20220721
  Transmission Date: 20221027
  Serious: No
  Sender: FDA-Public Use
  Company Number: US-PFIZER INC-PV202200017750

PATIENT
  Age: 61 Year
  Sex: Female

DRUGS (1)
  1. IBRANCE [Suspect]
     Active Substance: PALBOCICLIB
     Dosage: 125 MG

REACTIONS (6)
  - Fatigue [Unknown]
  - Back pain [Unknown]
  - Headache [Recovered/Resolved]
  - Dyspepsia [Unknown]
  - Constipation [Recovered/Resolved]
  - Abdominal pain upper [Recovered/Resolved]
